FAERS Safety Report 17427299 (Version 2)
Quarter: 2020Q1

REPORT INFORMATION
  Report Type: Spontaneous
  Country: US (occurrence: US)
  Receive Date: 20200217
  Receipt Date: 20200221
  Transmission Date: 20200409
  Serious: No
  Sender: FDA-Public Use
  Company Number: US-BRISTOL-MYERS SQUIBB COMPANY-BMS-2020-012746

PATIENT
  Sex: Female

DRUGS (1)
  1. ELIQUIS [Suspect]
     Active Substance: APIXABAN
     Indication: PULMONARY THROMBOSIS
     Dosage: UNK
     Route: 065
     Dates: start: 2020

REACTIONS (5)
  - Dysgeusia [Unknown]
  - Malaise [Unknown]
  - Palpitations [Unknown]
  - Muscular weakness [Unknown]
  - Viral infection [Unknown]
